FAERS Safety Report 5129635-8 (Version None)
Quarter: 2006Q4

REPORT INFORMATION
  Report Type: 
  Country: None (occurrence: None)
  Receive Date: 20061012
  Receipt Date: 20060929
  Transmission Date: 20070319
  Serious: Yes (Other)
  Sender: FDA-Public Use
  Company Number: 2006119127

PATIENT
  Sex: Female

DRUGS (2)
  1. SUTENT [Suspect]
  2. MULTIVITAMIN [Concomitant]

REACTIONS (2)
  - DYSPHONIA [None]
  - PHARYNGEAL OEDEMA [None]
